FAERS Safety Report 19743887 (Version 1)
Quarter: 2021Q3

REPORT INFORMATION
  Report Type: Spontaneous
  Country: TN (occurrence: TN)
  Receive Date: 20210824
  Receipt Date: 20210824
  Transmission Date: 20211014
  Serious: Yes (Other)
  Sender: FDA-Public Use
  Company Number: TN-SETONPHARMA-2021SETLIT00023

PATIENT
  Age: 33 Year
  Sex: Female

DRUGS (8)
  1. DEXAMETHASONE. [Concomitant]
     Active Substance: DEXAMETHASONE
     Indication: PRODUCT USED FOR UNKNOWN INDICATION
     Dosage: BOTH EYES
     Route: 047
  2. PREDNISOLONE. [Suspect]
     Active Substance: PREDNISOLONE
     Dosage: 4 MG/KG/DAY FOR 14 DAYS
     Route: 048
  3. AZATHIOPRINE. [Suspect]
     Active Substance: AZATHIOPRINE
     Indication: VOGT-KOYANAGI-HARADA DISEASE
     Dosage: 2.5 MG/KG/DAY
     Route: 065
  4. PREDNISOLONE. [Suspect]
     Active Substance: PREDNISOLONE
     Indication: VOGT-KOYANAGI-HARADA DISEASE
     Dosage: 1 MG/KG/DAY
     Route: 048
  5. PREDNISOLONE. [Suspect]
     Active Substance: PREDNISOLONE
     Dosage: 0.5 MG/KG/DAY
     Route: 048
  6. GANCICLOVIR. [Interacting]
     Active Substance: GANCICLOVIR
     Dosage: 2 MG/0.1 ML
  7. PREDNISOLONE. [Suspect]
     Active Substance: PREDNISOLONE
     Dosage: 5 MG/DAY
     Route: 048
  8. GANCICLOVIR. [Interacting]
     Active Substance: GANCICLOVIR
     Indication: CYTOMEGALOVIRUS CHORIORETINITIS
     Dosage: 5 MG/KG TWICE A DAY
     Route: 042

REACTIONS (10)
  - Retinal vascular disorder [Recovering/Resolving]
  - Visual acuity reduced [Recovering/Resolving]
  - Retinitis viral [Recovering/Resolving]
  - Retinal haemorrhage [Recovering/Resolving]
  - Cytomegalovirus chorioretinitis [Recovering/Resolving]
  - Keratic precipitates [Recovering/Resolving]
  - Accidental overdose [Unknown]
  - Visual impairment [Recovering/Resolving]
  - Drug effective for unapproved indication [Unknown]
  - Retinal artery occlusion [Recovering/Resolving]
